FAERS Safety Report 8133788-7 (Version None)
Quarter: 2012Q1

REPORT INFORMATION
  Report Type: 
  Country: None (occurrence: None)
  Receive Date: 20120213
  Receipt Date: 20120213
  Transmission Date: 20120608
  Serious: No
  Sender: FDA-Public Use
  Company Number: None

PATIENT
  Age: 34 Year
  Sex: Female
  Weight: 61.234 kg

DRUGS (1)
  1. NORGESTIMATE/ETHINYL ESTRADIOL [Suspect]
     Indication: CONTRACEPTION
     Dosage: ONE TABLET
     Dates: start: 20120129, end: 20120211

REACTIONS (1)
  - METRORRHAGIA [None]
